FAERS Safety Report 7545913-7 (Version None)
Quarter: 2011Q2

REPORT INFORMATION
  Report Type: 
  Country: None (occurrence: None)
  Receive Date: 20110524
  Receipt Date: 20110329
  Transmission Date: 20111010
  Serious: No
  Sender: FDA-Public Use
  Company Number: 028053

PATIENT
  Sex: Female

DRUGS (9)
  1. CIMZIA [Suspect]
     Indication: CROHN'S DISEASE
     Dosage: (200 MG 1X/2 WEEKS SUBCUTANEOUS) ; (SUBCUTANEOUS)
     Route: 058
     Dates: start: 20100518
  2. FOSAMAX [Concomitant]
  3. AMITRIPTYLINE HCL [Concomitant]
  4. SOMA [Concomitant]
  5. NEXIUM [Concomitant]
  6. CIMZIA [Suspect]
  7. NEOMYCIN [Concomitant]
  8. RESTASIS [Concomitant]
  9. B12 LATINO [Concomitant]

REACTIONS (4)
  - INFLUENZA [None]
  - FATIGUE [None]
  - FREQUENT BOWEL MOVEMENTS [None]
  - SLEEP DISORDER [None]
